FAERS Safety Report 8739600 (Version 2)
Quarter: 2012Q4

REPORT INFORMATION
  Report Type: 
  Country: CA (occurrence: CA)
  Receive Date: 20120823
  Receipt Date: 20121022
  Transmission Date: 20130627
  Serious: Yes (Hospitalization)
  Sender: FDA-Public Use
  Company Number: CA-GLAXOSMITHKLINE-A0989733A

PATIENT
  Age: 25 None
  Sex: Female
  Weight: 62.5 kg

DRUGS (3)
  1. VOTRIENT [Suspect]
     Indication: ANGIOSARCOMA
     Dosage: 800MG Per day
     Route: 048
     Dates: start: 20120515, end: 20120629
  2. MORPHINE SULPHATE [Concomitant]
  3. FERROUS GLUCONATE [Concomitant]

REACTIONS (6)
  - Adrenal mass [Recovered/Resolved]
  - Angiosarcoma metastatic [Recovered/Resolved]
  - Metastases to ovary [Recovered/Resolved]
  - Abdominal pain [Recovered/Resolved]
  - Pelvic pain [Recovered/Resolved]
  - Drug ineffective [Not Recovered/Not Resolved]
